FAERS Safety Report 20475986 (Version 1)
Quarter: 2022Q1

REPORT INFORMATION
  Report Type: Spontaneous
  Country: US (occurrence: None)
  Receive Date: 20220215
  Receipt Date: 20220215
  Transmission Date: 20220423
  Serious: Yes (Other)
  Sender: FDA-Public Use
  Company Number: None

PATIENT
  Age: 18 Year
  Sex: Female
  Weight: 50.9 kg

DRUGS (4)
  1. FERRIPROX [Suspect]
     Active Substance: DEFERIPRONE
     Indication: Iron overload
     Dosage: 500 MG TWICE A DAY ORAL?
     Route: 048
     Dates: start: 20220122, end: 20220124
  2. DESFERAL [Concomitant]
     Active Substance: DEFEROXAMINE MESYLATE
     Dates: start: 20010530
  3. Fluticazone Nasal Spray [Concomitant]
     Dates: start: 20020530
  4. FLOVENT [Concomitant]
     Active Substance: FLUTICASONE PROPIONATE
     Dates: start: 20020530

REACTIONS (10)
  - Tremor [None]
  - Fatigue [None]
  - Pain [None]
  - Arthralgia [None]
  - Pain in extremity [None]
  - Arthralgia [None]
  - Pain in extremity [None]
  - Arthralgia [None]
  - Discomfort [None]
  - Paraesthesia [None]

NARRATIVE: CASE EVENT DATE: 20220122
